FAERS Safety Report 5259493-2 (Version None)
Quarter: 2007Q1

REPORT INFORMATION
  Report Type: 
  Country: None (occurrence: None)
  Receive Date: 20070305
  Receipt Date: 20061011
  Transmission Date: 20070707
  Serious: Yes (Hospitalization)
  Sender: FDA-Public Use
  Company Number: 06-0132SU FU 1

PATIENT
  Age: 75 Year
  Sex: Female

DRUGS (6)
  1. SULAR [Suspect]
     Dosage: 20 MG, UNK, UNK
  2. FOSAMAX [Concomitant]
  3. CRESTOR [Concomitant]
  4. BENICAR HCT [Concomitant]
  5. METOPROLOL SUCCINATE [Concomitant]
  6. ASPIRIN [Concomitant]

REACTIONS (2)
  - DEAFNESS UNILATERAL [None]
  - LABYRINTHITIS [None]
